FAERS Safety Report 5821131-5 (Version None)
Quarter: 2008Q3

REPORT INFORMATION
  Report Type: 
  Country: None (occurrence: None)
  Receive Date: 20080724
  Receipt Date: 20080714
  Transmission Date: 20090109
  Serious: Yes (Other)
  Sender: FDA-Public Use
  Company Number: US-WYE-H05031508

PATIENT
  Age: 37 Year
  Sex: Female
  Weight: 52.21 kg

DRUGS (3)
  1. EFFEXOR XR [Suspect]
     Indication: MAJOR DEPRESSION
     Dosage: UNKNOWN
     Route: 048
     Dates: start: 20080703, end: 20080703
  2. VALIUM [Suspect]
     Dosage: UNKNOWN
     Dates: start: 20080704, end: 20080708
  3. AZMACORT [Concomitant]
     Indication: ASTHMA
     Dosage: UNKNOWN TWICWE DAILY

REACTIONS (10)
  - AMNESIA [None]
  - ANXIETY [None]
  - BURNING SENSATION [None]
  - DEPRESSED MOOD [None]
  - FEELING ABNORMAL [None]
  - HYPERACUSIS [None]
  - IRRITABILITY [None]
  - MUSCLE TIGHTNESS [None]
  - PHOTOSENSITIVITY REACTION [None]
  - UNEVALUABLE EVENT [None]
